FAERS Safety Report 26100880 (Version 1)
Quarter: 2025Q4

REPORT INFORMATION
  Report Type: Spontaneous
  Country: EU (occurrence: EU)
  Receive Date: 20251128
  Receipt Date: 20251128
  Transmission Date: 20260117
  Serious: Yes (Other)
  Sender: AUROBINDO
  Company Number: EU-AEMPS-1776888

PATIENT
  Age: 69 Year
  Sex: Male
  Weight: 87 kg

DRUGS (4)
  1. IRINOTECAN [Suspect]
     Active Substance: IRINOTECAN
     Indication: Adenocarcinoma gastric
     Dosage: UNK UNK, CYCLICAL
     Dates: start: 20250903, end: 20250905
  2. DEXAMETHASONE [Suspect]
     Active Substance: DEXAMETHASONE
     Indication: Prophylaxis
     Dosage: 8 MILLIGRAM, ONCE A DAY
     Dates: start: 20250904, end: 20250913
  3. FLUOROURACIL [Suspect]
     Active Substance: FLUOROURACIL
     Indication: Adenocarcinoma gastric
     Dosage: UNK UNK, CYCLICAL
     Dates: start: 20250903, end: 20250905
  4. LEUCOVORIN [Concomitant]
     Active Substance: LEUCOVORIN\LEUCOVORIN CALCIUM
     Indication: Adenocarcinoma gastric
     Dosage: UNK UNK, CYCLICAL
     Dates: start: 20250903, end: 20250905

REACTIONS (2)
  - Herpes zoster oticus [Not Recovered/Not Resolved]
  - Perichondritis [Not Recovered/Not Resolved]

NARRATIVE: CASE EVENT DATE: 20250911
